FAERS Safety Report 7311339-4 (Version None)
Quarter: 2011Q1

REPORT INFORMATION
  Report Type: 
  Country: None (occurrence: None)
  Receive Date: 20110224
  Receipt Date: 20110222
  Transmission Date: 20110831
  Serious: Yes (Other)
  Sender: FDA-Public Use
  Company Number: US-ABBOTT-11P-163-0699296-00

PATIENT
  Sex: Female
  Weight: 99.88 kg

DRUGS (3)
  1. VITAMIN B-12 [Concomitant]
     Indication: PRODUCT USED FOR UNKNOWN INDICATION
  2. HUMIRA [Suspect]
     Indication: CROHN'S DISEASE
     Dates: start: 20090701, end: 20091201
  3. HUMIRA [Suspect]
     Dates: start: 20100201

REACTIONS (4)
  - DRUG INEFFECTIVE [None]
  - INTESTINAL OBSTRUCTION [None]
  - DIARRHOEA [None]
  - ABDOMINAL DISTENSION [None]
